FAERS Safety Report 18497886 (Version 8)
Quarter: 2021Q2

REPORT INFORMATION
  Report Type: Spontaneous
  Country: US (occurrence: US)
  Receive Date: 20201112
  Receipt Date: 20210430
  Transmission Date: 20210717
  Serious: Yes (Congenital Anomaly, Other)
  Sender: FDA-Public Use
  Company Number: NVSC2020US300029

PATIENT
  Sex: Male

DRUGS (2)
  1. ZOFRAN ODT [Suspect]
     Active Substance: ONDANSETRON HYDROCHLORIDE
     Indication: FOETAL EXPOSURE DURING PREGNANCY
     Dosage: MOTHER DOSE: 08 MG, Q8H
     Route: 064
  2. ZOFRAN [Suspect]
     Active Substance: ONDANSETRON HYDROCHLORIDE
     Indication: FOETAL EXPOSURE DURING PREGNANCY
     Dosage: MOTHER DOSE: 04 MG
     Route: 064

REACTIONS (91)
  - Tricuspid valve incompetence [Unknown]
  - Left-to-right cardiac shunt [Unknown]
  - Laevocardia [Unknown]
  - Failure to thrive [Unknown]
  - Motor developmental delay [Unknown]
  - Cardiomegaly [Unknown]
  - Pleural effusion [Unknown]
  - Rash [Unknown]
  - Hiatus hernia [Unknown]
  - Influenza A virus test positive [Unknown]
  - Blood thyroid stimulating hormone increased [Unknown]
  - Underweight [Unknown]
  - Heart disease congenital [Unknown]
  - Otitis media chronic [Unknown]
  - Upper airway obstruction [Unknown]
  - Developmental delay [Unknown]
  - Abdominal pain [Unknown]
  - Atrial tachycardia [Unknown]
  - Hypotonia [Unknown]
  - Hypopituitarism [Unknown]
  - Ear pain [Unknown]
  - Scoliosis [Unknown]
  - Viral infection [Unknown]
  - Rhinorrhoea [Unknown]
  - Nasal congestion [Unknown]
  - Dyspnoea [Unknown]
  - Skin abrasion [Unknown]
  - Hepatic enzyme increased [Unknown]
  - Aortic valve incompetence [Unknown]
  - Arrhythmia [Unknown]
  - Hypoxia [Unknown]
  - Congestive hepatopathy [Unknown]
  - Endocrine disorder [Unknown]
  - Ventricular dysfunction [Unknown]
  - Febrile convulsion [Unknown]
  - Vomiting [Unknown]
  - Pyrexia [Unknown]
  - Headache [Unknown]
  - Tachycardia [Unknown]
  - Primary hypothyroidism [Unknown]
  - Glycosylated haemoglobin increased [Unknown]
  - Hypoplastic left heart syndrome [Unknown]
  - Palpitations [Unknown]
  - Upper respiratory tract infection [Unknown]
  - Right atrial dilatation [Unknown]
  - Sinusitis [Unknown]
  - Weight gain poor [Unknown]
  - Eustachian tube disorder [Unknown]
  - Malnutrition [Unknown]
  - Atrial septal defect [Unknown]
  - Portal hypertension [Unknown]
  - Mitral valve incompetence [Unknown]
  - Anaemia [Unknown]
  - Heart rate increased [Unknown]
  - Sneezing [Unknown]
  - Tachypnoea [Unknown]
  - Viral upper respiratory tract infection [Unknown]
  - Hypothyroidism [Unknown]
  - Laryngeal oedema [Unknown]
  - Mitral valve hypoplasia [Unknown]
  - Lung hyperinflation [Unknown]
  - Diastolic dysfunction [Unknown]
  - Right ventricular dilatation [Unknown]
  - Insomnia [Unknown]
  - Epiphyses delayed fusion [Unknown]
  - Oropharyngeal pain [Unknown]
  - Gamma-glutamyltransferase increased [Unknown]
  - Univentricular heart [Unknown]
  - Hepatic cirrhosis [Unknown]
  - Hyperpyrexia [Unknown]
  - Foetal exposure during pregnancy [Unknown]
  - Atrial flutter [Unknown]
  - Right ventricular hypertrophy [Unknown]
  - Chest pain [Unknown]
  - Dwarfism [Unknown]
  - Fatigue [Unknown]
  - Congenital aortic valve stenosis [Unknown]
  - Croup infectious [Unknown]
  - Respiratory tract oedema [Unknown]
  - Respiratory distress [Unknown]
  - Growth hormone deficiency [Unknown]
  - Injury [Unknown]
  - Right atrial enlargement [Unknown]
  - Cough [Unknown]
  - Diarrhoea [Unknown]
  - Stridor [Unknown]
  - Short stature [Unknown]
  - Decreased appetite [Unknown]
  - Blood pressure increased [Unknown]
  - Cyanosis [Unknown]
  - Right ventricular enlargement [Unknown]
